FAERS Safety Report 9444232 (Version 1)
Quarter: 2013Q3

REPORT INFORMATION
  Report Type: Spontaneous
  Country: US (occurrence: None)
  Receive Date: 20130806
  Receipt Date: 20130806
  Transmission Date: 20140515
  Serious: Yes (Other)
  Sender: FDA-Public Use
  Company Number: None

PATIENT
  Age: 52 Year
  Sex: Male
  Weight: 79.38 kg

DRUGS (1)
  1. GABAPENTIN [Suspect]
     Dosage: 600 MG 4 TIMES DAILY

REACTIONS (6)
  - Formication [None]
  - Agitation [None]
  - Aggression [None]
  - Anger [None]
  - Suicidal behaviour [None]
  - Drug withdrawal syndrome [None]
